FAERS Safety Report 4529872-7 (Version None)
Quarter: 2004Q4

REPORT INFORMATION
  Report Type: 
  Country: None (occurrence: None)
  Receive Date: 20041214
  Receipt Date: 20041129
  Transmission Date: 20050328
  Serious: Yes (Hospitalization)
  Sender: FDA-Public Use
  Company Number: K200401823

PATIENT
  Age: 22 Year
  Sex: Female
  Weight: 30 kg

DRUGS (6)
  1. NORDETTE-21 [Suspect]
     Indication: ORAL CONTRACEPTION
     Dosage: 1 TABLET, QD, ORAL
     Route: 048
     Dates: start: 20041024, end: 20041113
  2. CEFUROXIM ^CURASAN^ (CEFUROXIME SODIUM) [Concomitant]
  3. OMEPRAZOLE [Concomitant]
  4. IBUPROFEN [Concomitant]
  5. EFFORTIL (ETILEFRINE HYDROCHLORIDE) [Concomitant]
  6. ACETAMINOPHEN [Concomitant]

REACTIONS (4)
  - ALANINE AMINOTRANSFERASE INCREASED [None]
  - ASPARTATE AMINOTRANSFERASE INCREASED [None]
  - GAMMA-GLUTAMYLTRANSFERASE INCREASED [None]
  - PNEUMONIA [None]
